FAERS Safety Report 23081549 (Version 1)
Quarter: 2023Q4

REPORT INFORMATION
  Report Type: Spontaneous
  Country: BE (occurrence: BE)
  Receive Date: 20231019
  Receipt Date: 20231019
  Transmission Date: 20240109
  Serious: Yes (Other)
  Sender: FDA-Public Use
  Company Number: None

PATIENT
  Sex: Male

DRUGS (6)
  1. CLONAZEPAM [Suspect]
     Active Substance: CLONAZEPAM
     Dosage: 35 RIVOTRIL 30 CO OR 1050 TABLETS OVER 10 MONTHS?DAILY DOSE: 3 DOSAGE FORM
  2. PREGABALIN [Suspect]
     Active Substance: PREGABALIN
     Dosage: 2104 TABLETS OF LYRICA/PREGABALIN 300 MG OVER 10 MONTHS?DAILY DOSE: 7 DOSAGE FORM
  3. LYRICA [Suspect]
     Active Substance: PREGABALIN
     Dosage: 2104 TABLETS OF LYRICA/PREGABALIN 300 MG OVER 10 MONTHS?DAILY DOSE: 7 DOSAGE FORM
  4. TRAMADOL [Suspect]
     Active Substance: TRAMADOL\TRAMADOL HYDROCHLORIDE
  5. TRAMADOL [Suspect]
     Active Substance: TRAMADOL\TRAMADOL HYDROCHLORIDE
     Dosage: STRENGTH: 50 MG
  6. DIAZEPAM [Concomitant]
     Active Substance: DIAZEPAM

REACTIONS (3)
  - Overdose [Unknown]
  - Product prescribing issue [Unknown]
  - Pharmaceutical nomadism [Unknown]
